FAERS Safety Report 6340303-7 (Version None)
Quarter: 2009Q3

REPORT INFORMATION
  Report Type: 
  Country: None (occurrence: None)
  Receive Date: 20090902
  Receipt Date: 20090819
  Transmission Date: 20100115
  Serious: Yes (Life-Threatening, Hospitalization)
  Sender: FDA-Public Use
  Company Number: 1000008484

PATIENT
  Age: 85 Year
  Sex: Female

DRUGS (3)
  1. MEMANTINE HCL [Suspect]
     Indication: DEMENTIA
     Dosage: 20 MG (10 MG, 2 IN 1 D), ORAL
     Route: 048
     Dates: start: 20090509, end: 20090529
  2. ASPIRIN [Concomitant]
  3. HYDROXYCARBAMIDE [Concomitant]

REACTIONS (2)
  - ANAEMIA [None]
  - NEUTROPENIA [None]
